FAERS Safety Report 25162848 (Version 2)
Quarter: 2025Q2

REPORT INFORMATION
  Report Type: Spontaneous
  Country: US (occurrence: US)
  Receive Date: 20250404
  Receipt Date: 20250410
  Transmission Date: 20250716
  Serious: Yes (Life-Threatening, Hospitalization, Other)
  Sender: PFIZER
  Company Number: US-PFIZER INC-PV202500039359

PATIENT
  Age: 56 Year
  Sex: Male

DRUGS (10)
  1. PROPOFOL [Interacting]
     Active Substance: PROPOFOL
     Indication: Sedation
  2. MIDAZOLAM [Interacting]
     Active Substance: MIDAZOLAM
     Indication: Sedation
  3. FOSPHENYTOIN SODIUM [Interacting]
     Active Substance: FOSPHENYTOIN SODIUM
  4. PHENYTOIN [Interacting]
     Active Substance: PHENYTOIN
  5. CARBIDOPA\LEVODOPA [Interacting]
     Active Substance: CARBIDOPA\LEVODOPA
  6. TRAZODONE [Interacting]
     Active Substance: TRAZODONE HYDROCHLORIDE
  7. VORTIOXETINE [Interacting]
     Active Substance: VORTIOXETINE
  8. LURASIDONE [Interacting]
     Active Substance: LURASIDONE
  9. LAMOTRIGINE [Interacting]
     Active Substance: LAMOTRIGINE
  10. BACLOFEN [Interacting]
     Active Substance: BACLOFEN

REACTIONS (3)
  - Drug interaction [Recovered/Resolved]
  - Serotonin syndrome [Recovered/Resolved]
  - Neuroleptic malignant syndrome [Recovered/Resolved]
